FAERS Safety Report 21763837 (Version 2)
Quarter: 2023Q1

REPORT INFORMATION
  Report Type: Spontaneous
  Country: PT (occurrence: PT)
  Receive Date: 20221222
  Receipt Date: 20230121
  Transmission Date: 20230418
  Serious: Yes (Other)
  Sender: FDA-Public Use
  Company Number: PT-MLMSERVICE-20221207-3959795-1

PATIENT
  Age: 34 Year
  Sex: Female

DRUGS (3)
  1. CITALOPRAM [Suspect]
     Active Substance: CITALOPRAM HYDROBROMIDE
     Indication: Depression
     Dosage: 20 MILLIGRAM
     Route: 065
     Dates: start: 2020, end: 202009
  2. LAMOTRIGINE [Concomitant]
     Active Substance: LAMOTRIGINE
     Indication: Depression
     Dosage: 100 MILLIGRAM
     Route: 065
     Dates: start: 202006
  3. QUETIAPINE [Concomitant]
     Active Substance: QUETIAPINE
     Indication: Depression
     Dosage: EXTENDED-RELEASE
     Route: 065
     Dates: start: 202006

REACTIONS (5)
  - Paradoxical drug reaction [Recovering/Resolving]
  - Drug withdrawal syndrome [Recovering/Resolving]
  - Mania [Recovering/Resolving]
  - Antidepressant discontinuation syndrome [Unknown]
  - Therapeutic response delayed [Unknown]

NARRATIVE: CASE EVENT DATE: 20200101
